FAERS Safety Report 10022299 (Version 1)
Quarter: 2014Q1

REPORT INFORMATION
  Report Type: Spontaneous
  Country: IT (occurrence: IT)
  Receive Date: 20140319
  Receipt Date: 20140319
  Transmission Date: 20141002
  Serious: Yes (Hospitalization)
  Sender: FDA-Public Use
  Company Number: IT-TEVA-467578ISR

PATIENT
  Age: 17 Year
  Sex: Female

DRUGS (1)
  1. CARBOLITHIUM 300 MG [Suspect]
     Dosage: 15000 MILLIGRAM DAILY;
     Route: 048
     Dates: start: 20140206, end: 20140206

REACTIONS (2)
  - Sopor [Recovered/Resolved]
  - Drug abuse [Recovered/Resolved]
